FAERS Safety Report 21619102 (Version 1)
Quarter: 2022Q4

REPORT INFORMATION
  Report Type: Spontaneous
  Country: US (occurrence: US)
  Receive Date: 20221120
  Receipt Date: 20221120
  Transmission Date: 20230112
  Serious: No
  Sender: FDA-Public Use
  Company Number: US-JNJFOC-20221114050

PATIENT
  Age: 47 Year
  Sex: Female

DRUGS (4)
  1. IMODIUM [Suspect]
     Active Substance: LOPERAMIDE HYDROCHLORIDE
     Indication: Diarrhoea
     Route: 065
  2. ORENITRAM [Suspect]
     Active Substance: TREPROSTINIL
     Indication: Pulmonary arterial hypertension
     Route: 048
     Dates: start: 20191005
  3. ORENITRAM [Suspect]
     Active Substance: TREPROSTINIL
     Route: 048
  4. AMBRISENTAN [Concomitant]
     Active Substance: AMBRISENTAN
     Route: 065
     Dates: start: 20191008

REACTIONS (3)
  - Diarrhoea [Not Recovered/Not Resolved]
  - Lactose intolerance [Unknown]
  - Therapy partial responder [Unknown]
